FAERS Safety Report 15640717 (Version 4)
Quarter: 2021Q2

REPORT INFORMATION
  Report Type: Spontaneous
  Country: US (occurrence: US)
  Receive Date: 20181120
  Receipt Date: 20210427
  Transmission Date: 20210716
  Serious: Yes (Other)
  Sender: FDA-Public Use
  Company Number: US-PFIZER INC-2018474604

PATIENT
  Age: 7 Month
  Sex: Male

DRUGS (2)
  1. BENEFIX [Suspect]
     Active Substance: COAGULATION FACTOR IX RECOMBINANT HUMAN\ISOPROPYL ALCOHOL
     Indication: HAEMORRHAGE
     Dosage: 1700 IU, DAILY (AND THEN EVERY OTHER DAY UNTIL 24APR2021)
     Dates: start: 20210414
  2. BENEFIX [Suspect]
     Active Substance: COAGULATION FACTOR IX RECOMBINANT HUMAN\ISOPROPYL ALCOHOL
     Indication: FACTOR IX DEFICIENCY
     Dosage: 1500 IU, DAILY (1500 UNITS (+5%) = 100 UNITS/KG DAILY ON DEMAND FOR A BLEED)

REACTIONS (2)
  - Fall [Unknown]
  - Haemorrhage [Unknown]
